FAERS Safety Report 15554864 (Version 1)
Quarter: 2018Q4

REPORT INFORMATION
  Report Type: Spontaneous
  Country: US (occurrence: US)
  Receive Date: 20181025
  Receipt Date: 20181025
  Transmission Date: 20190205
  Serious: Yes (Hospitalization)
  Sender: FDA-Public Use
  Company Number: None

PATIENT
  Age: 35 Year
  Sex: Female
  Weight: 72.57 kg

DRUGS (5)
  1. CALCIUM/MAGNESIUM/ VITD [Concomitant]
  2. CHASTE TREE BERRY [Concomitant]
  3. OMEGA 3 [Concomitant]
     Active Substance: OMEGA-3 FATTY ACIDS
  4. PRENATAL DAILY [Concomitant]
  5. MIRENA [Suspect]
     Active Substance: LEVONORGESTREL

REACTIONS (18)
  - Premenstrual dysphoric disorder [None]
  - Crying [None]
  - Fatigue [None]
  - Abnormal loss of weight [None]
  - Back pain [None]
  - Fungal infection [None]
  - Stress [None]
  - Depression [None]
  - Vomiting [None]
  - Scar [None]
  - Mood altered [None]
  - Menstruation irregular [None]
  - Vision blurred [None]
  - Loss of personal independence in daily activities [None]
  - Migraine [None]
  - Headache [None]
  - Blindness unilateral [None]
  - Complication associated with device [None]

NARRATIVE: CASE EVENT DATE: 20170515
